FAERS Safety Report 21734985 (Version 3)
Quarter: 2023Q1

REPORT INFORMATION
  Report Type: Spontaneous
  Country: ES (occurrence: None)
  Receive Date: 20221215
  Receipt Date: 20230202
  Transmission Date: 20230418
  Serious: Yes (Other)
  Sender: FDA-Public Use
  Company Number: ES-ROCHE-3189669

PATIENT
  Age: 44 Year
  Sex: Male

DRUGS (1)
  1. OCREVUS [Suspect]
     Active Substance: OCRELIZUMAB
     Indication: Multiple sclerosis
     Dosage: LAST PERFUSION OF OCREVUS IN MARCH 2022
     Route: 042
     Dates: start: 202203

REACTIONS (4)
  - Dyshidrotic eczema [Recovered/Resolved]
  - Photosensitivity reaction [Recovered/Resolved]
  - Pigmentation disorder [Recovered/Resolved]
  - Superinfection [Recovered/Resolved]

NARRATIVE: CASE EVENT DATE: 20220401
